FAERS Safety Report 16333201 (Version 1)
Quarter: 2019Q2

REPORT INFORMATION
  Report Type: Spontaneous
  Country: US (occurrence: US)
  Receive Date: 20190520
  Receipt Date: 20190520
  Transmission Date: 20190711
  Serious: No
  Sender: FDA-Public Use
  Company Number: US-GE HEALTHCARE LIFE SCIENCES-2019CSU001556

PATIENT
  Age: 74 Year
  Sex: Female
  Weight: 85.45 kg

DRUGS (23)
  1. ULTRAM [Concomitant]
     Active Substance: TRAMADOL HYDROCHLORIDE
  2. MYOVIEW [Suspect]
     Active Substance: TECHNETIUM TC-99M TETROFOSMIN
     Indication: CHEST PAIN
  3. PREMARIN [Concomitant]
     Active Substance: ESTROGENS, CONJUGATED
  4. NEURONTIN [Concomitant]
     Active Substance: GABAPENTIN
  5. LOSARTAN. [Concomitant]
     Active Substance: LOSARTAN
  6. ZYRTEC [Concomitant]
     Active Substance: CETIRIZINE HYDROCHLORIDE
  7. DEPAKOTE [Concomitant]
     Active Substance: DIVALPROEX SODIUM
  8. MYCOSTATIN [Concomitant]
     Active Substance: NYSTATIN
  9. ZOCOR [Concomitant]
     Active Substance: SIMVASTATIN
  10. FLONASE [Concomitant]
     Active Substance: FLUTICASONE PROPIONATE
  11. MICROZIDE [Concomitant]
     Active Substance: HYDROCHLOROTHIAZIDE
  12. ADVIL [Concomitant]
     Active Substance: IBUPROFEN
  13. MYOVIEW [Suspect]
     Active Substance: TECHNETIUM TC-99M TETROFOSMIN
     Indication: CARDIAC STRESS TEST
     Dosage: 1517 MBQ (41 MCI), ONCE
     Route: 042
     Dates: start: 20190307, end: 20190307
  14. MYOVIEW [Suspect]
     Active Substance: TECHNETIUM TC-99M TETROFOSMIN
     Indication: SCAN MYOCARDIAL PERFUSION
  15. MYOVIEW [Suspect]
     Active Substance: TECHNETIUM TC-99M TETROFOSMIN
     Indication: DYSPNOEA
  16. TECHNETIUM TC 99M [Concomitant]
     Active Substance: TECHNETIUM TC-99M
     Dosage: UNK UNK, SINGLE
     Route: 042
     Dates: start: 20190307, end: 20190307
  17. ASA [Concomitant]
     Active Substance: ASPIRIN
  18. FLUOROMETHOLONE. [Concomitant]
     Active Substance: FLUOROMETHOLONE
  19. LASIX [Concomitant]
     Active Substance: FUROSEMIDE
  20. NIZORAL [Concomitant]
     Active Substance: KETOCONAZOLE
  21. ABILIFY [Concomitant]
     Active Substance: ARIPIPRAZOLE
  22. SYNTHROID [Concomitant]
     Active Substance: LEVOTHYROXINE SODIUM
  23. PROTONIX [Concomitant]
     Active Substance: PANTOPRAZOLE SODIUM

REACTIONS (2)
  - No adverse event [Recovered/Resolved]
  - Drug ineffective [Recovered/Resolved]

NARRATIVE: CASE EVENT DATE: 20190307
